FAERS Safety Report 7879107-2 (Version None)
Quarter: 2011Q4

REPORT INFORMATION
  Report Type: 
  Country: None (occurrence: None)
  Receive Date: 20111101
  Receipt Date: 20111020
  Transmission Date: 20120403
  Serious: Yes (Hospitalization)
  Sender: FDA-Public Use
  Company Number: US-BAYER-201038078NA

PATIENT
  Age: 29 Year
  Sex: Female
  Weight: 103.86 kg

DRUGS (6)
  1. IBUPROFEN [Concomitant]
     Dosage: UNK, PRN
  2. ETODOLAC [Concomitant]
  3. ETODOLAC [Concomitant]
  4. TRAMADOL HCL [Concomitant]
     Route: 048
  5. YASMIN [Suspect]
     Indication: CONTRACEPTION
     Dates: start: 20011101, end: 20041001
  6. CENTRUM [Concomitant]
     Dosage: UNK
     Dates: start: 20010101

REACTIONS (2)
  - PAIN [None]
  - DEEP VEIN THROMBOSIS [None]
